FAERS Safety Report 21562557 (Version 2)
Quarter: 2022Q4

REPORT INFORMATION
  Report Type: Spontaneous
  Country: RU (occurrence: RU)
  Receive Date: 20221107
  Receipt Date: 20221108
  Transmission Date: 20230113
  Serious: Yes (Other)
  Sender: FDA-Public Use
  Company Number: US-CHIESI-2022CHF05777

PATIENT
  Age: 10 Year
  Sex: Female

DRUGS (2)
  1. BRONCHITOL [Suspect]
     Active Substance: MANNITOL
     Indication: Pulmonary function challenge test
     Dosage: UNK
  2. BRONCHITOL [Suspect]
     Active Substance: MANNITOL
     Indication: Pulmonary function challenge test
     Dosage: UNK

REACTIONS (1)
  - Haemoptysis [Unknown]
